FAERS Safety Report 4719419-4 (Version None)
Quarter: 2005Q3

REPORT INFORMATION
  Report Type: 
  Country: None (occurrence: None)
  Receive Date: 20050721
  Receipt Date: 20050629
  Transmission Date: 20060218
  Serious: No
  Sender: FDA-Public Use
  Company Number: US-BRISTOL-MYERS SQUIBB COMPANY-13020615

PATIENT
  Age: 47 Year
  Sex: Female

DRUGS (1)
  1. ESTRACE [Suspect]
     Indication: HORMONE REPLACEMENT THERAPY
     Route: 048
     Dates: start: 19900101

REACTIONS (2)
  - MUSCLE SPASMS [None]
  - ORAL ADMINISTRATION COMPLICATION [None]
